FAERS Safety Report 5958106-1 (Version None)
Quarter: 2008Q4

REPORT INFORMATION
  Report Type: 
  Country: None (occurrence: None)
  Receive Date: 20081119
  Receipt Date: 20081118
  Transmission Date: 20090506
  Serious: Yes (Other)
  Sender: FDA-Public Use
  Company Number: D0058798A

PATIENT
  Age: 72 Year
  Sex: Male

DRUGS (2)
  1. REQUIP [Suspect]
     Route: 048
     Dates: start: 20080807
  2. CARBIDOPA AND LEVODOPA [Suspect]
     Route: 065

REACTIONS (5)
  - DIZZINESS [None]
  - FALL [None]
  - HALLUCINATION [None]
  - NERVOUS SYSTEM DISORDER [None]
  - SLEEP DISORDER [None]
